FAERS Safety Report 13705132 (Version 1)
Quarter: 2017Q2

REPORT INFORMATION
  Report Type: Report from Study
  Country: IT (occurrence: IT)
  Receive Date: 20170630
  Receipt Date: 20170630
  Transmission Date: 20170830
  Serious: Yes (Hospitalization)
  Sender: FDA-Public Use
  Company Number: IT-EISAI MEDICAL RESEARCH-EC-2017-028677

PATIENT
  Age: 61 Year
  Sex: Male
  Weight: 78.4 kg

DRUGS (11)
  1. DELTACORTENE [Concomitant]
     Active Substance: PREDNISONE
  2. LENVATINIB [Suspect]
     Active Substance: LENVATINIB
     Indication: ANAPLASTIC THYROID CANCER
     Route: 048
     Dates: start: 20170426, end: 20170512
  3. LOSAPREX [Concomitant]
     Active Substance: LOSARTAN POTASSIUM
  4. LYRICA [Concomitant]
     Active Substance: PREGABALIN
  5. MATRIFEN [Concomitant]
     Active Substance: FENTANYL
  6. MORPHIN [Concomitant]
     Active Substance: MORPHINE
  7. LANSOPRAZOLE. [Concomitant]
     Active Substance: LANSOPRAZOLE
  8. MOVICOL [Concomitant]
     Active Substance: POLYETHYLENE GLYCOL 3350\POTASSIUM CHLORIDE\SODIUM BICARBONATE\SODIUM CHLORIDE
  9. LENVATINIB [Suspect]
     Active Substance: LENVATINIB
     Route: 048
     Dates: start: 20170522, end: 20170620
  10. BRUFEN [Concomitant]
     Active Substance: IBUPROFEN
  11. EUTIROX [Concomitant]
     Active Substance: LEVOTHYROXINE SODIUM

REACTIONS (1)
  - Dysphagia [Unknown]

NARRATIVE: CASE EVENT DATE: 20170620
